FAERS Safety Report 7629781-0 (Version None)
Quarter: 2011Q3

REPORT INFORMATION
  Report Type: 
  Country: None (occurrence: None)
  Receive Date: 20110722
  Receipt Date: 20110707
  Transmission Date: 20111222
  Serious: Yes (Other)
  Sender: FDA-Public Use
  Company Number: US-B.I. PHARMACEUTICALS,INC./RIDGEFIELD-2011-BP-13221BP

PATIENT
  Sex: Female
  Weight: 78.47 kg

DRUGS (2)
  1. MIRAPEX [Suspect]
     Indication: FIBROMYALGIA
     Dates: start: 20050117, end: 20101222
  2. MIRAPEX [Suspect]
     Indication: RESTLESS LEGS SYNDROME

REACTIONS (11)
  - EMOTIONAL DISTRESS [None]
  - INSOMNIA [None]
  - ASTHENIA [None]
  - ABNORMAL DREAMS [None]
  - COMPULSIVE SHOPPING [None]
  - SUICIDE ATTEMPT [None]
  - PAIN [None]
  - FATIGUE [None]
  - HYPERPHAGIA [None]
  - PATHOLOGICAL GAMBLING [None]
  - SOMNAMBULISM [None]
